FAERS Safety Report 5502418-2 (Version None)
Quarter: 2007Q4

REPORT INFORMATION
  Report Type: 
  Country: None (occurrence: None)
  Receive Date: 20071030
  Receipt Date: 20071022
  Transmission Date: 20080405
  Serious: Yes (Hospitalization, Other)
  Sender: FDA-Public Use
  Company Number: US-PFIZER INC-2007063748

PATIENT
  Sex: Male
  Weight: 33.4 kg

DRUGS (10)
  1. FLUCONAZOLE [Suspect]
     Indication: SYSTEMIC CANDIDA
     Route: 042
     Dates: start: 20070729, end: 20070803
  2. KEPPRA [Suspect]
     Indication: CONVULSION
     Route: 042
     Dates: start: 20070712, end: 20070803
  3. NEXIUM [Suspect]
     Indication: GASTROOESOPHAGEAL REFLUX DISEASE
     Route: 042
     Dates: start: 20070729, end: 20070803
  4. ATIVAN [Suspect]
     Indication: AGITATION
     Dosage: TEXT:3-4.5MG-FREQ:Q3-4H: PRN
     Route: 042
     Dates: start: 20070706, end: 20070803
  5. CLONIDINE [Suspect]
     Indication: NEURALGIA
  6. METHADONE HCL [Suspect]
     Indication: PAIN
     Route: 048
     Dates: start: 20070729, end: 20070803
  7. METHADONE HCL [Suspect]
     Indication: SEDATION
  8. DIAZEPAM [Suspect]
     Indication: AGITATION
     Route: 042
  9. DEMEROL [Suspect]
     Indication: PAIN
     Dosage: TEXT:25-50 MG-FREQ:Q2H: PRN
     Route: 042
     Dates: start: 20070730, end: 20070803
  10. PAXIL [Suspect]
     Dosage: DAILY DOSE:15MG
     Route: 048
     Dates: start: 20070701, end: 20070803

REACTIONS (3)
  - BLOOD AMYLASE INCREASED [None]
  - LIPASE INCREASED [None]
  - PANCREATITIS [None]
